FAERS Safety Report 15749102 (Version 3)
Quarter: 2019Q2

REPORT INFORMATION
  Report Type: Spontaneous
  Country: US (occurrence: US)
  Receive Date: 20181221
  Receipt Date: 20190607
  Transmission Date: 20190711
  Serious: Yes (Death, Other)
  Sender: FDA-Public Use
  Company Number: US-SUN PHARMACEUTICAL INDUSTRIES LTD-2018R1-194438

PATIENT
  Age: 27 Year
  Sex: Male

DRUGS (2)
  1. MITRAGYNINE [Interacting]
     Active Substance: HERBALS\MITRAGYNINE
     Indication: PRODUCT USED FOR UNKNOWN INDICATION
     Dosage: UNK
     Route: 065
  2. QUETIAPINE. [Suspect]
     Active Substance: QUETIAPINE
     Indication: PRODUCT USED FOR UNKNOWN INDICATION
     Dosage: UNK
     Route: 065

REACTIONS (6)
  - Herbal interaction [Fatal]
  - Toxicity to various agents [Unknown]
  - Drug level increased [Fatal]
  - Seizure like phenomena [Unknown]
  - Hyperthermia [Unknown]
  - Drug interaction [Fatal]
